FAERS Safety Report 9406639 (Version 1)
Quarter: 2013Q3

REPORT INFORMATION
  Report Type: Spontaneous
  Country: ES (occurrence: ES)
  Receive Date: 20130718
  Receipt Date: 20130718
  Transmission Date: 20140515
  Serious: Yes (Hospitalization)
  Sender: FDA-Public Use
  Company Number: ES-GENZYME-THYM-1003907

PATIENT
  Age: 44 Year
  Sex: Male

DRUGS (10)
  1. THYMOGLOBULINE [Suspect]
     Indication: RENAL TRANSPLANT
     Dosage: 100 MG, QD
     Route: 042
     Dates: start: 20120824, end: 20120824
  2. THYMOGLOBULINE [Suspect]
     Dosage: 50 MG, QD
     Route: 042
     Dates: start: 20120825, end: 20120825
  3. THYMOGLOBULINE [Suspect]
     Dosage: UNK
     Route: 042
     Dates: start: 20120826, end: 20120826
  4. HYDROCORTISONE [Suspect]
     Indication: RENAL TRANSPLANT
     Dosage: 100 MG, EVERY 48 HOURS
     Route: 042
     Dates: start: 20120824, end: 20120826
  5. CLOXACILLIN [Concomitant]
     Indication: SURGERY
     Dosage: 1 G, QD
     Route: 042
     Dates: start: 20120824, end: 20120824
  6. FUROSEMIDE [Concomitant]
     Indication: RENAL TRANSPLANT
     Dosage: 250 MCG, QD
     Route: 042
     Dates: start: 20120824, end: 20120824
  7. MANNITOL [Concomitant]
     Indication: RENAL TRANSPLANT
     Dosage: 250 ML, UNK
     Route: 042
     Dates: start: 20120824, end: 20120824
  8. MYFORTIC [Concomitant]
     Indication: RENAL TRANSPLANT
     Dosage: 360 MG, BID
     Route: 048
     Dates: start: 20120824
  9. PARACETAMOL [Concomitant]
     Indication: PAIN
     Dosage: 1 G, TID
     Route: 042
     Dates: start: 20120824
  10. TOBRAMYCIN [Concomitant]
     Indication: PROPHYLAXIS
     Dosage: 100 MG, QD
     Route: 042
     Dates: start: 20120824, end: 20120824

REACTIONS (2)
  - Pancreatitis acute [Recovered/Resolved]
  - Thrombocytopenia [Recovered/Resolved]
